FAERS Safety Report 22330843 (Version 1)
Quarter: 2023Q2

REPORT INFORMATION
  Report Type: Spontaneous
  Country: ES (occurrence: ES)
  Receive Date: 20230517
  Receipt Date: 20230517
  Transmission Date: 20230722
  Serious: Yes (Other)
  Sender: FDA-Public Use
  Company Number: ES-SUN PHARMACEUTICAL INDUSTRIES LTD-2023R1-381141

PATIENT
  Sex: Male

DRUGS (2)
  1. AMPHOTERICIN B [Suspect]
     Active Substance: AMPHOTERICIN B
     Indication: Central nervous system infection
     Dosage: 25 MICROGRAM, EVERY 72 H
     Route: 037
  2. AMPHOTERICIN B [Suspect]
     Active Substance: AMPHOTERICIN B
     Indication: Central nervous system infection
     Dosage: 5 MILLIGRAM/KILOGRAM
     Route: 065

REACTIONS (2)
  - Renal tubular disorder [Unknown]
  - Electrolyte imbalance [Recovering/Resolving]
